FAERS Safety Report 4964891-8 (Version None)
Quarter: 2006Q1

REPORT INFORMATION
  Report Type: 
  Country: None (occurrence: None)
  Receive Date: 20060130
  Receipt Date: 20051027
  Transmission Date: 20060701
  Serious: Yes (Other)
  Sender: FDA-Public Use
  Company Number: 143521USA

PATIENT
  Age: 44 Year
  Sex: Female

DRUGS (5)
  1. COPAXONE [Suspect]
     Indication: MULTIPLE SCLEROSIS
     Dates: start: 20020501
  2. TAMOXIFEN CITRATE [Concomitant]
  3. NEXIUM [Concomitant]
  4. ALLEGRA [Concomitant]
  5. COENZYME Q10 [Concomitant]

REACTIONS (4)
  - BREAST CANCER [None]
  - HEMIPARESIS [None]
  - HYPOAESTHESIA [None]
  - MULTIPLE SCLEROSIS RELAPSE [None]
